FAERS Safety Report 20126746 (Version 1)
Quarter: 2021Q4

REPORT INFORMATION
  Report Type: Spontaneous
  Country: US (occurrence: None)
  Receive Date: 20211129
  Receipt Date: 20211129
  Transmission Date: 20220304
  Serious: Yes (Hospitalization)
  Sender: FDA-Public Use
  Company Number: None

PATIENT
  Sex: Female

DRUGS (4)
  1. PULMOZYME [Suspect]
     Active Substance: DORNASE ALFA
     Indication: Cystic fibrosis
     Route: 055
     Dates: start: 20190308
  2. TOBRAMYCIN [Concomitant]
  3. TRIKAFTA [Concomitant]
  4. TRIKAFTA TAB [Concomitant]

REACTIONS (1)
  - Hospitalisation [None]
